FAERS Safety Report 16969530 (Version 3)
Quarter: 2022Q2

REPORT INFORMATION
  Report Type: Spontaneous
  Country: JP (occurrence: JP)
  Receive Date: 20191029
  Receipt Date: 20220520
  Transmission Date: 20220720
  Serious: Yes (Death, Other)
  Sender: FDA-Public Use
  Company Number: JP-GLAXOSMITHKLINE-JP2019JPN193052

PATIENT

DRUGS (13)
  1. MEPOLIZUMAB [Suspect]
     Active Substance: MEPOLIZUMAB
     Indication: Asthma
     Dosage: 100MG EVERY 4 WEEKS
     Route: 058
     Dates: start: 20190926, end: 20190926
  2. MEPOLIZUMAB [Suspect]
     Active Substance: MEPOLIZUMAB
     Indication: Asthma
     Dosage: 100MG EVERY 4 WEEKS
     Route: 058
     Dates: start: 20191031, end: 20191031
  3. MEPOLIZUMAB [Suspect]
     Active Substance: MEPOLIZUMAB
     Dosage: 100MG EVERY 4 WEEKS
     Route: 058
     Dates: start: 20191205, end: 20191205
  4. MEPOLIZUMAB [Suspect]
     Active Substance: MEPOLIZUMAB
     Dosage: 100MG EVERY 4 WEEKS
     Route: 058
     Dates: start: 20200109, end: 20200109
  5. MEPOLIZUMAB [Suspect]
     Active Substance: MEPOLIZUMAB
     Dosage: 100MG EVERY 4 WEEKS
     Route: 058
     Dates: start: 20200206, end: 20200206
  6. MEPOLIZUMAB [Suspect]
     Active Substance: MEPOLIZUMAB
     Dosage: 100MG EVERY 4 WEEKS
     Route: 058
     Dates: start: 20200305, end: 20200305
  7. MEPOLIZUMAB [Suspect]
     Active Substance: MEPOLIZUMAB
     Dosage: 100MG EVERY 4 WEEKS
     Route: 058
     Dates: start: 20200402, end: 20200402
  8. MEPOLIZUMAB [Suspect]
     Active Substance: MEPOLIZUMAB
     Dosage: 100 MG
     Route: 058
     Dates: start: 20200507, end: 20200507
  9. SYMBICORT [Concomitant]
     Active Substance: BUDESONIDE\FORMOTEROL FUMARATE DIHYDRATE
     Indication: Asthma
     Dosage: 640 UG, 1D
     Route: 055
  10. SPIRIVA [Concomitant]
     Active Substance: TIOTROPIUM BROMIDE MONOHYDRATE
     Indication: Asthma
     Dosage: 5 UG, 1D
  11. MONTELUKAST SODIUM [Concomitant]
     Active Substance: MONTELUKAST SODIUM
     Indication: Asthma
     Dosage: 10 MG, 1D
     Route: 048
  12. THEOPHYLLINE ANHYDROUS [Concomitant]
     Active Substance: THEOPHYLLINE ANHYDROUS
     Indication: Asthma
     Dosage: 200 MG, 1D
     Route: 048
  13. EDIROL CAPSULE [Concomitant]
     Dosage: UNK
     Route: 048

REACTIONS (1)
  - Lip and/or oral cavity cancer [Fatal]
